FAERS Safety Report 24166055 (Version 1)
Quarter: 2024Q3

REPORT INFORMATION
  Report Type: Spontaneous
  Country: US (occurrence: US)
  Receive Date: 20240802
  Receipt Date: 20240802
  Transmission Date: 20241017
  Serious: Yes (Other)
  Sender: DR REDDYS
  Company Number: US-DRL-USA-LIT/USA/24/0011107

PATIENT
  Age: 65 Year
  Sex: Female

DRUGS (5)
  1. COLCHICINE [Suspect]
     Active Substance: COLCHICINE
     Indication: Pericarditis
  2. IBUPROFEN [Suspect]
     Active Substance: IBUPROFEN
     Indication: Pericarditis
  3. PREDNISONE [Concomitant]
     Active Substance: PREDNISONE
     Indication: Pericarditis
  4. ANAKINRA [Concomitant]
     Active Substance: ANAKINRA
     Indication: Pericarditis
  5. RILONACEPT [Concomitant]
     Active Substance: RILONACEPT
     Indication: Pericarditis

REACTIONS (1)
  - Drug ineffective for unapproved indication [Unknown]
